FAERS Safety Report 17770406 (Version 1)
Quarter: 2020Q2

REPORT INFORMATION
  Report Type: Spontaneous
  Country: NL (occurrence: NL)
  Receive Date: 20200512
  Receipt Date: 20200512
  Transmission Date: 20200714
  Serious: Yes (Hospitalization)
  Sender: FDA-Public Use
  Company Number: NL-ASTRAZENECA-2020SE59353

PATIENT
  Sex: Male
  Weight: 107 kg

DRUGS (4)
  1. OMNIC [Concomitant]
     Active Substance: TAMSULOSIN HYDROCHLORIDE
     Dosage: CONTROLLED -RELEASE TABLET 0.4 MG (MILLIGRAMS)
  2. COZAAR PLUS [Concomitant]
     Active Substance: HYDROCHLOROTHIAZIDE\LOSARTAN POTASSIUM
     Dosage: TABLET, 100/12,5 MG (MILLIGRAM)1.0DF UNKNOWN
  3. AMLODIPINE [Concomitant]
     Active Substance: AMLODIPINE BESYLATE
     Dosage: TABLET, 5 MG (MILLIGRAM)5.0MG UNKNOWN
  4. LYNPARZA [Suspect]
     Active Substance: OLAPARIB
     Indication: PROSTATE CANCER METASTATIC
     Dosage: 2X300MG
     Route: 048
     Dates: start: 20200413

REACTIONS (1)
  - Pancreatitis [Not Recovered/Not Resolved]
